FAERS Safety Report 6149298-2 (Version None)
Quarter: 2009Q2

REPORT INFORMATION
  Report Type: 
  Country: None (occurrence: None)
  Receive Date: 20090406
  Receipt Date: 20090406
  Transmission Date: 20091009
  Serious: Yes (Other)
  Sender: FDA-Public Use
  Company Number: None

PATIENT
  Sex: Female
  Weight: 58.9676 kg

DRUGS (2)
  1. EFFEXOR XR [Suspect]
     Indication: ANXIETY
     Dosage: 75 MG 1 PER DAY PO
     Route: 048
     Dates: start: 20050920, end: 20090403
  2. EFFEXOR XR [Suspect]
     Indication: DEPRESSION
     Dosage: 75 MG 1 PER DAY PO
     Route: 048
     Dates: start: 20050920, end: 20090403

REACTIONS (1)
  - DRUG WITHDRAWAL SYNDROME [None]
